FAERS Safety Report 12114732 (Version 1)
Quarter: 2016Q1

REPORT INFORMATION
  Report Type: Spontaneous
  Country: JP (occurrence: JP)
  Receive Date: 20160225
  Receipt Date: 20160225
  Transmission Date: 20160526
  Serious: Yes (Death)
  Sender: FDA-Public Use
  Company Number: PHJP2016JP003881

PATIENT
  Age: 92 Year
  Sex: Male

DRUGS (1)
  1. PURSENNIDE TAB [Suspect]
     Active Substance: SENNOSIDES A AND B
     Indication: PRODUCT USED FOR UNKNOWN INDICATION
     Dosage: 12 MG, QD
     Route: 048

REACTIONS (2)
  - Diarrhoea [Unknown]
  - Death [Fatal]
